FAERS Safety Report 5832107-6 (Version None)
Quarter: 2008Q3

REPORT INFORMATION
  Report Type: 
  Country: None (occurrence: None)
  Receive Date: 20080731
  Receipt Date: 20080721
  Transmission Date: 20090109
  Serious: Yes (Hospitalization)
  Sender: FDA-Public Use
  Company Number: 163-21880-08071118

PATIENT
  Age: 66 Year
  Sex: Male
  Weight: 81.4 kg

DRUGS (3)
  1. REVLIMID [Suspect]
     Indication: MULTIPLE MYELOMA
     Dosage: 25 MG, ORAL
     Route: 048
     Dates: start: 20060720, end: 20070302
  2. REVLIMID [Suspect]
     Indication: MULTIPLE MYELOMA
     Dosage: 25 MG, ORAL
     Route: 048
     Dates: start: 20050909
  3. DEXAMETHASONEC(DEXAMETHASONE) [Suspect]
     Indication: MULTIPLE MYELOMA
     Dosage: ORAL
     Route: 048
     Dates: start: 20050909

REACTIONS (4)
  - ATELECTASIS [None]
  - FEBRILE NEUTROPENIA [None]
  - LETHARGY [None]
  - PYREXIA [None]
